FAERS Safety Report 6462233-2 (Version None)
Quarter: 2009Q4

REPORT INFORMATION
  Report Type: 
  Country: None (occurrence: None)
  Receive Date: 20091130
  Receipt Date: 20091120
  Transmission Date: 20100525
  Serious: Yes (Hospitalization)
  Sender: FDA-Public Use
  Company Number: NL-ABBOTT-09P-114-0607768-00

PATIENT
  Sex: Female

DRUGS (15)
  1. CLARITHROMYCIN [Suspect]
     Indication: LUNG INFECTION
     Route: 048
     Dates: start: 20091007, end: 20091010
  2. CLARITHROMYCIN [Suspect]
     Indication: URINARY TRACT INFECTION
     Route: 048
     Dates: start: 19930817
  3. TRISPORAL [Concomitant]
     Indication: FUNGAL INFECTION
     Route: 048
     Dates: start: 20060101
  4. NEXIUM [Concomitant]
     Indication: PROPHYLAXIS AGAINST GASTROINTESTINAL ULCER
     Route: 048
     Dates: start: 20020101
  5. SERTIVA [Concomitant]
     Indication: PULMONARY FUNCTION TEST DECREASED
     Route: 055
     Dates: start: 20020101
  6. SIMCORT TURBOINYHALER [Concomitant]
     Indication: PULMONARY FUNCTION TEST DECREASED
     Dosage: 200/6 MCG 2-3 TIMES DAILY
     Route: 055
     Dates: start: 20020101
  7. OXIS TURBOHALER [Concomitant]
     Indication: PULMONARY FUNCTION TEST DECREASED
     Dosage: 12 MCG 1-3 TIMES DAILY
     Route: 055
     Dates: start: 20020101
  8. HYDROCHLOROTHIAZIDE [Concomitant]
     Indication: DRUG USE FOR UNKNOWN INDICATION
  9. ASCAL [Concomitant]
     Indication: ANTICOAGULANT THERAPY
  10. LACTULOSE [Concomitant]
     Indication: GASTROINTESTINAL DISORDER
     Route: 048
  11. DULCOLAX [Concomitant]
     Indication: DRUG USE FOR UNKNOWN INDICATION
  12. FURADANTIN [Concomitant]
     Indication: DRUG USE FOR UNKNOWN INDICATION
  13. SPIRIVA [Concomitant]
     Indication: DRUG USE FOR UNKNOWN INDICATION
  14. DIAZEPAM [Concomitant]
     Indication: DRUG USE FOR UNKNOWN INDICATION
     Route: 048
  15. MOVICOLON [Concomitant]
     Indication: DRUG USE FOR UNKNOWN INDICATION
     Route: 048

REACTIONS (4)
  - ASPERGILLOSIS [None]
  - CHRONIC OBSTRUCTIVE PULMONARY DISEASE [None]
  - DYSPNOEA [None]
  - LOBAR PNEUMONIA [None]
